FAERS Safety Report 14475418 (Version 1)
Quarter: 2018Q1

REPORT INFORMATION
  Report Type: Spontaneous
  Country: JP (occurrence: JP)
  Receive Date: 20180201
  Receipt Date: 20180201
  Transmission Date: 20180509
  Serious: Yes (Death, Hospitalization, Other)
  Sender: FDA-Public Use
  Company Number: JP-ASTRAZENECA-2017SF15536

PATIENT
  Age: 29957 Day
  Sex: Male
  Weight: 45 kg

DRUGS (11)
  1. TAGRISSO [Suspect]
     Active Substance: OSIMERTINIB
     Indication: NON-SMALL CELL LUNG CANCER
     Route: 048
     Dates: start: 20171003, end: 20171021
  2. IRESSA [Suspect]
     Active Substance: GEFITINIB
     Indication: NON-SMALL CELL LUNG CANCER
     Route: 048
     Dates: start: 20170529, end: 20171001
  3. MAINTATE [Suspect]
     Active Substance: BISOPROLOL FUMARATE
     Route: 065
  4. ALINAMIN F [Suspect]
     Active Substance: FURSULTIAMINE HYDROCHLORIDE
     Route: 065
  5. CYTOTEC [Suspect]
     Active Substance: MISOPROSTOL
     Route: 065
  6. ESTAZOLAM. [Suspect]
     Active Substance: ESTAZOLAM
     Route: 065
  7. TAKECAB [Suspect]
     Active Substance: VONOPRAZAN FUMURATE
     Route: 065
  8. LACTOMIN [Suspect]
     Active Substance: LACTOBACILLUS ACIDOPHILUS
     Route: 065
  9. ISOSORBIDE. [Suspect]
     Active Substance: ISOSORBIDE
     Route: 048
  10. IRESSA [Suspect]
     Active Substance: GEFITINIB
     Indication: NON-SMALL CELL LUNG CANCER
     Route: 048
     Dates: start: 20170106, end: 20170517
  11. AMLODIPINE BESILATE [Suspect]
     Active Substance: AMLODIPINE BESYLATE
     Route: 048

REACTIONS (5)
  - Malignant pleural effusion [Unknown]
  - Interstitial lung disease [Recovered/Resolved]
  - Gastrointestinal haemorrhage [Fatal]
  - Malignant neoplasm progression [Unknown]
  - Diarrhoea [Recovered/Resolved]

NARRATIVE: CASE EVENT DATE: 20170517
